FAERS Safety Report 18339522 (Version 1)
Quarter: 2020Q4

REPORT INFORMATION
  Report Type: Report from Study
  Country: US (occurrence: US)
  Receive Date: 20201002
  Receipt Date: 20201002
  Transmission Date: 20210113
  Serious: Yes (Death, Hospitalization)
  Sender: FDA-Public Use
  Company Number: US-EXELIXIS-CABO-20027789

PATIENT
  Age: 61 Year
  Sex: Male

DRUGS (1)
  1. CABOMETYX [Suspect]
     Active Substance: CABOZANTINIB S-MALATE
     Indication: RENAL CANCER
     Dosage: 40 MG, QD

REACTIONS (7)
  - Acute kidney injury [Fatal]
  - COVID-19 [Fatal]
  - Acute respiratory failure [Fatal]
  - Fatigue [Unknown]
  - Asthenia [Unknown]
  - Malignant neoplasm progression [Unknown]
  - Streptococcal bacteraemia [Unknown]

NARRATIVE: CASE EVENT DATE: 20200504
